FAERS Safety Report 10586860 (Version 1)
Quarter: 2014Q4

REPORT INFORMATION
  Report Type: Spontaneous
  Country: US (occurrence: None)
  Receive Date: 20141114
  Receipt Date: 20141114
  Transmission Date: 20150529
  Serious: Yes (Other)
  Sender: FDA-Public Use
  Company Number: None

PATIENT
  Age: 61 Year
  Sex: Female
  Weight: 63.5 kg

DRUGS (2)
  1. OXYCODONE/APAP [Suspect]
     Active Substance: ACETAMINOPHEN\OXYCODONE HYDROCHLORIDE
     Indication: ANALGESIC THERAPY
     Dosage: 1 TAB
     Route: 048
     Dates: start: 20111101, end: 20111130
  2. GABAPENTIN. [Suspect]
     Active Substance: GABAPENTIN
     Indication: PAIN MANAGEMENT
     Dosage: 2 TABS
     Route: 048
     Dates: start: 20111101, end: 20111130

REACTIONS (4)
  - Activities of daily living impaired [None]
  - Product substitution issue [None]
  - Pain [None]
  - Drug effect decreased [None]

NARRATIVE: CASE EVENT DATE: 20111101
